FAERS Safety Report 9218918 (Version 1)
Quarter: 2013Q2

REPORT INFORMATION
  Report Type: Spontaneous
  Country: US (occurrence: None)
  Receive Date: 20130405
  Receipt Date: 20130405
  Transmission Date: 20140414
  Serious: No
  Sender: FDA-Public Use
  Company Number: None

PATIENT
  Age: 17 Year
  Sex: Female
  Weight: 94.8 kg

DRUGS (1)
  1. CITALOPRAM [Suspect]
     Dates: start: 20130312

REACTIONS (4)
  - Anxiety [None]
  - Panic attack [None]
  - Paranoia [None]
  - Product substitution issue [None]
